FAERS Safety Report 14557345 (Version 8)
Quarter: 2019Q3

REPORT INFORMATION
  Report Type: Report from Study
  Country: US (occurrence: CA)
  Receive Date: 20180221
  Receipt Date: 20190903
  Transmission Date: 20191004
  Serious: Yes (Other)
  Sender: FDA-Public Use
  Company Number: US-SUNOVION-2015000751

PATIENT
  Age: 70 Year
  Sex: Female

DRUGS (13)
  1. XOLAIR [Suspect]
     Active Substance: OMALIZUMAB
     Dosage: 375 MG (BIW)
     Route: 058
     Dates: start: 20180228
  2. PREDNISONE. [Concomitant]
     Active Substance: PREDNISONE
     Indication: ASTHMA
  3. SINGULAIR [Concomitant]
     Active Substance: MONTELUKAST SODIUM
     Indication: PRODUCT USED FOR UNKNOWN INDICATION
     Dosage: UNK
     Route: 065
  4. SYMBICORT [Concomitant]
     Active Substance: BUDESONIDE\FORMOTEROL FUMARATE DIHYDRATE
     Indication: PRODUCT USED FOR UNKNOWN INDICATION
     Dosage: UNK
     Route: 065
  5. XOLAIR [Suspect]
     Active Substance: OMALIZUMAB
     Dosage: UNK
     Route: 058
     Dates: start: 20180131
  6. XOLAIR [Suspect]
     Active Substance: OMALIZUMAB
     Dosage: 375 UNK, UNK (BIW)
     Route: 058
     Dates: start: 20180214
  7. XOLAIR [Suspect]
     Active Substance: OMALIZUMAB
     Dosage: 375 MG, BIW
     Route: 058
     Dates: start: 20190205
  8. GLYCOPYRROLATE. [Suspect]
     Active Substance: GLYCOPYRROLATE
     Indication: PRODUCT USED FOR UNKNOWN INDICATION
     Dosage: UNK, REGIMEN #1
     Route: 055
     Dates: start: 2015
  9. XOLAIR [Suspect]
     Active Substance: OMALIZUMAB
     Dosage: UNK
  10. XOLAIR [Suspect]
     Active Substance: OMALIZUMAB
     Dosage: 375 MG, BIW
     Route: 058
     Dates: start: 20180912
  11. XOLAIR [Suspect]
     Active Substance: OMALIZUMAB
     Indication: ASTHMA
     Dosage: 375 MG, BIW
     Route: 058
     Dates: start: 20130731, end: 20140131
  12. XOLAIR [Suspect]
     Active Substance: OMALIZUMAB
     Dosage: 375 UNK, UNK
     Route: 058
     Dates: start: 20151124
  13. XOLAIR [Suspect]
     Active Substance: OMALIZUMAB
     Dosage: 375 MG BIW
     Dates: start: 20190807

REACTIONS (27)
  - Influenza [Unknown]
  - Discomfort [Unknown]
  - Throat clearing [Unknown]
  - Dyspnoea [Recovering/Resolving]
  - Dust allergy [Unknown]
  - Chest pain [Unknown]
  - Fracture [Unknown]
  - Chest discomfort [Unknown]
  - Upper respiratory tract infection [Recovering/Resolving]
  - Wheezing [Unknown]
  - Dyspnoea exertional [Recovering/Resolving]
  - Pharyngitis [Recovering/Resolving]
  - Upper limb fracture [Unknown]
  - Blood immunoglobulin E increased [Unknown]
  - Lower respiratory tract infection [Recovered/Resolved]
  - Fall [Unknown]
  - Pyrexia [Recovered/Resolved]
  - Insomnia [Unknown]
  - Anxiety [Unknown]
  - Sputum discoloured [Unknown]
  - Productive cough [Unknown]
  - Perfume sensitivity [Unknown]
  - Sensitivity to weather change [Unknown]
  - Asthma [Unknown]
  - Cough [Not Recovered/Not Resolved]
  - Smoke sensitivity [Unknown]
  - Fatigue [Recovering/Resolving]

NARRATIVE: CASE EVENT DATE: 201508
